FAERS Safety Report 19964449 (Version 1)
Quarter: 2021Q4

REPORT INFORMATION
  Report Type: Spontaneous
  Country: ES (occurrence: ES)
  Receive Date: 20211018
  Receipt Date: 20211018
  Transmission Date: 20220304
  Serious: Yes (Other)
  Sender: FDA-Public Use
  Company Number: ES-SA-SAC20211013001350

PATIENT

DRUGS (1)
  1. LEFLUNOMIDE [Suspect]
     Active Substance: LEFLUNOMIDE
     Dosage: UNK (DATE OF INITIATION OF TREATMENT 11/2015 )
     Dates: start: 201511

REACTIONS (2)
  - Blood disorder [Unknown]
  - Liver disorder [Unknown]
